FAERS Safety Report 4425416-9 (Version None)
Quarter: 2004Q3

REPORT INFORMATION
  Report Type: 
  Country: None (occurrence: None)
  Receive Date: 20040813
  Receipt Date: 20040802
  Transmission Date: 20050211
  Serious: Yes (Other)
  Sender: FDA-Public Use
  Company Number: CH-GLAXOSMITHKLINE-B0342068B

PATIENT

DRUGS (3)
  1. ZIDOVUDINE [Suspect]
     Route: 065
  2. ZIDOVUDINE [Suspect]
     Indication: HIV INFECTION
  3. LAMIVUDINE [Suspect]
     Indication: HIV INFECTION

REACTIONS (7)
  - ANAEMIA [None]
  - CONGENITAL ATRIAL SEPTAL DEFECT [None]
  - CRYPTORCHISM [None]
  - DRUG EXPOSURE DURING PREGNANCY [None]
  - HAEMATOMA [None]
  - PREMATURE BABY [None]
  - RESPIRATORY DISTRESS [None]
